FAERS Safety Report 7342513-9 (Version None)
Quarter: 2011Q1

REPORT INFORMATION
  Report Type: 
  Country: None (occurrence: None)
  Receive Date: 20110310
  Receipt Date: 20110307
  Transmission Date: 20110831
  Serious: No
  Sender: FDA-Public Use
  Company Number: US-PFIZER INC-2011049401

PATIENT
  Sex: Male
  Weight: 99.773 kg

DRUGS (5)
  1. LYRICA [Suspect]
     Indication: NERVE INJURY
     Dosage: 75MG, DAILY
     Route: 048
     Dates: start: 20110201, end: 20110305
  2. COUMADIN [Concomitant]
     Indication: THROMBOSIS
     Dosage: 10 MG, UNK
     Route: 048
  3. PREDNISONE [Concomitant]
     Indication: NERVE INJURY
     Dosage: 7 PILLS A DAY GRADUALLY REDUCED AND MAKE IT ONE PILL A DAY ON THE 7TH DAY THEN DISCONTINUED
     Route: 048
     Dates: start: 20110201, end: 20110201
  4. HYDROCODONE [Concomitant]
     Indication: BACK DISORDER
     Dosage: 500 MG, AS NEEDED
     Route: 048
  5. HYDROCODONE [Concomitant]
     Indication: NERVE INJURY

REACTIONS (3)
  - DRUG SCREEN POSITIVE [None]
  - HYPOAESTHESIA [None]
  - SOMNOLENCE [None]
